FAERS Safety Report 4327705-5 (Version None)
Quarter: 2004Q1

REPORT INFORMATION
  Report Type: 
  Country: None (occurrence: None)
  Receive Date: 20040325
  Receipt Date: 20040309
  Transmission Date: 20041129
  Serious: Yes (Hospitalization)
  Sender: FDA-Public Use
  Company Number: 701275

PATIENT
  Age: 85 Year
  Sex: Female

DRUGS (14)
  1. AMEVIVE [Suspect]
     Indication: PSORIASIS
     Dosage: 15 MCG QW IM
     Route: 030
     Dates: start: 20030901, end: 20031020
  2. GLICLAZIDE [Concomitant]
  3. SIMVASTATIN [Concomitant]
  4. ASPIRIN [Concomitant]
  5. ZOLOFT [Concomitant]
  6. RANI [Concomitant]
  7. ASTRIX [Concomitant]
  8. CARVEDILOL [Concomitant]
  9. DRIED FERROUS SULFATE [Concomitant]
  10. PRAVACHOL [Concomitant]
  11. UREX [Concomitant]
  12. ATICARD PLUS [Concomitant]
  13. LIPITOR [Concomitant]
  14. BETAMETHASONE [Concomitant]

REACTIONS (9)
  - DEHYDRATION [None]
  - DIABETIC NEPHROPATHY [None]
  - DRUG INEFFECTIVE [None]
  - FEELING ABNORMAL [None]
  - HEPATITIS INFECTIOUS [None]
  - HYPOTENSION [None]
  - MARKEDLY REDUCED DIETARY INTAKE [None]
  - RENAL IMPAIRMENT [None]
  - URINARY TRACT INFECTION [None]
